FAERS Safety Report 8598705-4 (Version None)
Quarter: 2012Q3

REPORT INFORMATION
  Report Type: 
  Country: None (occurrence: None)
  Receive Date: 20120816
  Receipt Date: 20120806
  Transmission Date: 20120928
  Serious: Yes (Hospitalization)
  Sender: FDA-Public Use
  Company Number: DE-ASTRAZENECA-2012SE56520

PATIENT
  Age: 70 Year
  Sex: Female
  Weight: 43 kg

DRUGS (7)
  1. FORSENID [Concomitant]
     Indication: CONSTIPATION
     Route: 048
     Dates: start: 20120715, end: 20120718
  2. CANDESARTAN CILEXETIL [Suspect]
     Indication: HYPERTENSION
     Route: 048
     Dates: start: 20120501, end: 20120717
  3. ROZEREM [Suspect]
     Indication: SLEEP DISORDER
     Route: 048
     Dates: start: 20120712, end: 20120717
  4. LEVOFLOXACIN [Concomitant]
     Indication: PYREXIA
     Route: 048
     Dates: start: 20120713, end: 20120719
  5. LANSOPRAZOLE [Concomitant]
     Indication: GASTRITIS
     Route: 048
     Dates: start: 20120710, end: 20120717
  6. NORVASC [Concomitant]
     Indication: HYPERTENSION
     Route: 048
     Dates: start: 20120501, end: 20120717
  7. THREENOFEN [Concomitant]
     Indication: BACK PAIN
     Route: 048
     Dates: start: 20120710, end: 20120717

REACTIONS (7)
  - COGNITIVE DISORDER [None]
  - DIZZINESS [None]
  - DEPRESSED LEVEL OF CONSCIOUSNESS [None]
  - EATING DISORDER [None]
  - NAUSEA [None]
  - VOMITING [None]
  - ALTERED STATE OF CONSCIOUSNESS [None]
